FAERS Safety Report 12377362 (Version 1)
Quarter: 2016Q2

REPORT INFORMATION
  Report Type: Report from Study
  Country: US (occurrence: US)
  Receive Date: 20160517
  Receipt Date: 20160517
  Transmission Date: 20160815
  Serious: No
  Sender: FDA-Public Use
  Company Number: US-MALLINCKRODT-T201505034

PATIENT
  Age: 62 Year
  Sex: Female

DRUGS (1)
  1. REPOSITORY CORTICOTROPIN INJECTION [Suspect]
     Active Substance: CORTICOTROPIN
     Indication: RHEUMATOID ARTHRITIS
     Dosage: 80 UNITS TWICE PER WEEK
     Route: 058
     Dates: start: 20151002, end: 20160215

REACTIONS (4)
  - Injection site pruritus [Not Recovered/Not Resolved]
  - Weight increased [Unknown]
  - Injection site pain [Not Recovered/Not Resolved]
  - Injection site urticaria [Not Recovered/Not Resolved]

NARRATIVE: CASE EVENT DATE: 20151028
